FAERS Safety Report 4430023-8 (Version None)
Quarter: 2004Q3

REPORT INFORMATION
  Report Type: 
  Country: None (occurrence: None)
  Receive Date: 20040817
  Receipt Date: 20040805
  Transmission Date: 20050211
  Serious: Yes (Hospitalization, Other)
  Sender: FDA-Public Use
  Company Number: HQWYE970305AUG04

PATIENT
  Age: 52 Year
  Sex: Female

DRUGS (21)
  1. OROKEN (CEFIXIME, TABLET) [Suspect]
     Dosage: 400 MG DAILY, ORAL
     Route: 048
     Dates: start: 20040527, end: 20040529
  2. FUNGIZONE [Suspect]
     Dosage: ORAL
     Route: 048
     Dates: start: 20040503, end: 20040531
  3. LEXOMIL (BROMAZEPAM, ) [Suspect]
     Dosage: 25 U DAILY; ORAL
     Route: 048
     Dates: start: 20040521, end: 20040604
  4. VANCOMYCIN [Suspect]
     Dosage: INTRAVENOUS
     Route: 042
     Dates: start: 20040501, end: 20040527
  5. VALACYCLOVIR HCL [Suspect]
     Dosage: 1 G DAILY, ORAL
     Route: 048
     Dates: start: 20040527, end: 20040530
  6. ZOVIRAX [Suspect]
     Dosage: ORAL
     Route: 048
     Dates: start: 20040512, end: 20040527
  7. TRAMADOL HCL [Concomitant]
  8. LASIX [Concomitant]
  9. CEFTRIAXONE [Concomitant]
  10. BLOOD CELLS, PACKED HUMAN (BLOOD CELLS, PACKED HUMAN) [Concomitant]
  11. TAVANIC (LEVOFLOXACIN) [Concomitant]
  12. ZYLORID (ALLOPURINOL) [Concomitant]
  13. TIENAM (CILASTATIN/IMIPENEM) [Concomitant]
  14. MOPRAL (OMEPRZOLE) [Concomitant]
  15. SOLU-MEDROL [Concomitant]
  16. POLARAMINE [Concomitant]
  17. PLITICAN (ALIZAPRIDE HYDROCHLORIDE) [Concomitant]
  18. KYTRIL [Concomitant]
  19. IDARUBICIN HCL [Concomitant]
  20. CYTARABINE [Concomitant]
  21. ATARAX [Concomitant]

REACTIONS (6)
  - DERMATITIS EXFOLIATIVE [None]
  - ERYTHEMA [None]
  - GRAFT VERSUS HOST DISEASE [None]
  - HYPERSENSITIVITY [None]
  - PRURIGO [None]
  - RASH PAPULAR [None]
